FAERS Safety Report 8911660 (Version 3)
Quarter: 2013Q2

REPORT INFORMATION
  Report Type: Spontaneous
  Country: JP (occurrence: JP)
  Receive Date: 20121115
  Receipt Date: 20130412
  Transmission Date: 20140414
  Serious: No
  Sender: FDA-Public Use
  Company Number: JP-ABBOTT-12P-087-1004533-00

PATIENT
  Age: 24 Year
  Sex: Female

DRUGS (2)
  1. HUMIRA [Suspect]
     Indication: PSORIASIS
     Dates: start: 20111201, end: 20111201
  2. HUMIRA [Suspect]
     Dates: end: 20120928

REACTIONS (4)
  - Hepatic function abnormal [Recovered/Resolved]
  - Blood lactate dehydrogenase increased [Unknown]
  - Aspartate aminotransferase increased [Unknown]
  - Alanine aminotransferase increased [Unknown]
